FAERS Safety Report 8357188-X (Version None)
Quarter: 2012Q2

REPORT INFORMATION
  Report Type: 
  Country: None (occurrence: None)
  Receive Date: 20120514
  Receipt Date: 20120507
  Transmission Date: 20120825
  Serious: Yes (Other)
  Sender: FDA-Public Use
  Company Number: US-BAYER-2011-017604

PATIENT
  Age: 28 Year
  Sex: Female

DRUGS (8)
  1. YAZ [Suspect]
     Dosage: UNK
     Dates: start: 20060201, end: 20070701
  2. DESOGESTREL AND ETHINYL ESTRADIOL [Suspect]
     Dosage: UNK
     Dates: start: 20080601, end: 20091001
  3. CHLORDIAZEPOXIDE [Concomitant]
     Dosage: 5 MG-2.5 MG
     Dates: start: 20081202, end: 20090918
  4. NEXIUM [Concomitant]
     Dosage: 40 MG, UNK
     Dates: start: 20081202, end: 20091211
  5. OXYCODONE HCL AND ACETAMINOPHEN [Concomitant]
     Dosage: 5MG/325MG
     Dates: start: 20081216, end: 20081226
  6. LIBRAX [Concomitant]
     Dosage: UNK
     Dates: start: 20081201
  7. YAZ [Suspect]
     Dosage: UNK
     Dates: start: 20080601, end: 20091001
  8. DESOGESTREL AND ETHINYL ESTRADIOL [Suspect]
     Dosage: UNK
     Dates: start: 20060201, end: 20070701

REACTIONS (3)
  - CHOLECYSTITIS CHRONIC [None]
  - NEPHROLITHIASIS [None]
  - CHOLECYSTECTOMY [None]
